FAERS Safety Report 8370381-5 (Version None)
Quarter: 2012Q2

REPORT INFORMATION
  Report Type: 
  Country: None (occurrence: None)
  Receive Date: 20120518
  Receipt Date: 20120507
  Transmission Date: 20120825
  Serious: Yes (Other)
  Sender: FDA-Public Use
  Company Number: US-JNJFOC-20120507784

PATIENT
  Sex: Female

DRUGS (1)
  1. REMICADE [Suspect]
     Indication: PSORIATIC ARTHROPATHY
     Dosage: ON INFLIXIMAB FOR 5 MONTHS
     Route: 042

REACTIONS (6)
  - NAUSEA [None]
  - WEIGHT DECREASED [None]
  - FOOD AVERSION [None]
  - ABDOMINAL DISCOMFORT [None]
  - MYALGIA [None]
  - DRUG INEFFECTIVE [None]
